FAERS Safety Report 24422419 (Version 1)
Quarter: 2024Q4

REPORT INFORMATION
  Report Type: Spontaneous
  Country: US (occurrence: None)
  Receive Date: 20241009
  Receipt Date: 20241009
  Transmission Date: 20250115
  Serious: Yes (Hospitalization)
  Sender: Public
  Company Number: None

PATIENT
  Sex: Female

DRUGS (7)
  1. KESIMPTA [Suspect]
     Active Substance: OFATUMUMAB
     Indication: Multiple sclerosis
     Dosage: OTHER QUANTITY : 1 PEN;?OTHER FREQUENCY : EVERY 30 (THIRTY) DAYS;?
     Route: 058
  2. FLUOXETINE [Concomitant]
  3. GABAPENTIN [Concomitant]
  4. KP VITAMIN D [Concomitant]
  5. LEVOTHYROXIN [Concomitant]
  6. MECLIZINE [Concomitant]
  7. VITAMIN C [Concomitant]

REACTIONS (5)
  - Product use issue [None]
  - Multiple sclerosis relapse [None]
  - Therapy interrupted [None]
  - Vertigo [None]
  - Sensory loss [None]
